FAERS Safety Report 15763993 (Version 2)
Quarter: 2019Q1

REPORT INFORMATION
  Report Type: Report from Study
  Country: US (occurrence: US)
  Receive Date: 20181227
  Receipt Date: 20190211
  Transmission Date: 20190417
  Serious: Yes (Other)
  Sender: FDA-Public Use
  Company Number: US-ROCHE-2234098

PATIENT

DRUGS (2)
  1. CAPECITABINE. [Suspect]
     Active Substance: CAPECITABINE
     Indication: ANAL CANCER
     Route: 065
  2. MITOMYCIN. [Suspect]
     Active Substance: MITOMYCIN
     Indication: ANAL CANCER
     Route: 065

REACTIONS (5)
  - Proctalgia [Unknown]
  - Diarrhoea [Unknown]
  - Dermatitis [Unknown]
  - Stomatitis [Unknown]
  - Nausea [Unknown]
